FAERS Safety Report 24561181 (Version 2)
Quarter: 2025Q1

REPORT INFORMATION
  Report Type: Spontaneous
  Country: US (occurrence: US)
  Receive Date: 20241029
  Receipt Date: 20250130
  Transmission Date: 20250408
  Serious: No
  Sender: Tarsus Pharmaceuticals
  Company Number: US-TARSUS PHARMACEUTICALS-TSP-US-2024-000498

PATIENT
  Sex: Female
  Weight: 51.247 kg

DRUGS (3)
  1. XDEMVY [Suspect]
     Active Substance: LOTILANER
     Indication: Eye disorder
     Dosage: 1 DROP, BID INTO EACH EYE
     Route: 047
     Dates: start: 20240923, end: 20241012
  2. XDEMVY [Suspect]
     Active Substance: LOTILANER
     Indication: Arthropod infestation
  3. SYNTHROID [Concomitant]
     Active Substance: LEVOTHYROXINE SODIUM
     Indication: Product used for unknown indication
     Route: 065

REACTIONS (6)
  - Condition aggravated [Recovered/Resolved]
  - Eye pain [Recovered/Resolved]
  - Eye irritation [Recovered/Resolved]
  - Swelling of eyelid [Recovered/Resolved]
  - Ocular discomfort [Recovered/Resolved]
  - Eyelid disorder [Recovered/Resolved]

NARRATIVE: CASE EVENT DATE: 20240101
